FAERS Safety Report 7116255-9 (Version None)
Quarter: 2010Q4

REPORT INFORMATION
  Report Type: 
  Country: None (occurrence: None)
  Receive Date: 20101122
  Receipt Date: 20101115
  Transmission Date: 20110411
  Serious: Yes (Other)
  Sender: FDA-Public Use
  Company Number: JP-JNJFOC-20101106248

PATIENT
  Age: 60 Year
  Sex: Female
  Weight: 53 kg

DRUGS (25)
  1. DOXORUBICIN HCL [Suspect]
     Indication: OVARIAN CANCER RECURRENT
     Dosage: CYCLE 5
     Route: 042
  2. DOXORUBICIN HCL [Suspect]
     Dosage: CYCLE 4
     Route: 042
  3. DOXORUBICIN HCL [Suspect]
     Dosage: CYCLE 2
     Route: 042
  4. DOXORUBICIN HCL [Suspect]
     Dosage: CYCLE 1
     Route: 042
  5. DOXORUBICIN HCL [Suspect]
     Dosage: CYCLE 6
     Route: 042
  6. DOXORUBICIN HCL [Suspect]
     Dosage: CYCLE 7
     Route: 042
  7. DOXORUBICIN HCL [Suspect]
     Dosage: CYCLE 8
     Route: 042
  8. DOXORUBICIN HCL [Suspect]
     Dosage: CYCLE 9
     Route: 042
  9. DOXORUBICIN HCL [Suspect]
     Dosage: CYCLE 3
     Route: 042
  10. BLOPRESS [Concomitant]
     Route: 048
  11. LIPIDIL [Concomitant]
     Route: 048
  12. DAI-KENCHU-TO [Concomitant]
     Route: 048
  13. DAI-KENCHU-TO [Concomitant]
     Route: 048
  14. MAGLAX [Concomitant]
     Route: 048
  15. PRIMPERAN [Concomitant]
     Indication: PROPHYLAXIS
     Route: 048
  16. HACHIAZULE [Concomitant]
     Indication: PROPHYLAXIS
     Route: 049
  17. DECADRON [Concomitant]
     Indication: PROPHYLAXIS
     Route: 042
  18. DECADRON [Concomitant]
     Route: 042
  19. DECADRON [Concomitant]
     Route: 042
  20. GLUCOSE [Concomitant]
     Indication: PROPHYLAXIS
     Route: 042
  21. GLUCOSE [Concomitant]
     Route: 042
  22. GLUCOSE [Concomitant]
     Route: 042
  23. GLUCOSE [Concomitant]
     Route: 042
  24. HEPARIN [Concomitant]
     Route: 061
  25. ANTEBATE [Concomitant]
     Route: 061

REACTIONS (1)
  - PERIPHERAL SENSORY NEUROPATHY [None]
